FAERS Safety Report 21284747 (Version 1)
Quarter: 2022Q3

REPORT INFORMATION
  Report Type: Spontaneous
  Country: US (occurrence: US)
  Receive Date: 20220902
  Receipt Date: 20220902
  Transmission Date: 20221026
  Serious: Yes (Other)
  Sender: FDA-Public Use
  Company Number: ENDG21-04728

PATIENT
  Sex: Female

DRUGS (6)
  1. PREDNISONE [Suspect]
     Active Substance: PREDNISONE
     Indication: Cough
     Dosage: 2 DF, DAILY AND TAPER DOWN
     Route: 065
  2. PREDNISONE [Suspect]
     Active Substance: PREDNISONE
     Dosage: 1 DF (INSTEAD OF TWO), DAILY, AND TAPER DOWN FROM THERE
     Route: 065
  3. PREDNISONE [Suspect]
     Active Substance: PREDNISONE
     Dosage: UNK UNKNOWN, UNKNOWN (TAPER DOWN)
     Route: 065
  4. PREDNISONE [Suspect]
     Active Substance: PREDNISONE
     Dosage: 20 MG (SUPPOSED TO START THE FIRST DAY TAKING 20 MG IN THE MORNING AND ONE AT NIGHT)
     Route: 065
     Dates: start: 20210902, end: 20210902
  5. PREDNISONE [Suspect]
     Active Substance: PREDNISONE
     Dosage: 20 MG IN THE MORNING, THEN HAD TO CUT ONE IN HALF
     Route: 065
     Dates: start: 20210903, end: 20210903
  6. PREDNISONE [Suspect]
     Active Substance: PREDNISONE
     Dosage: UNK UNKNOWN, UNKNOWN
     Route: 065

REACTIONS (3)
  - Blood glucose increased [Unknown]
  - Glycosylated haemoglobin increased [Unknown]
  - Intentional product use issue [Not Recovered/Not Resolved]
